FAERS Safety Report 12559853 (Version 1)
Quarter: 2016Q3

REPORT INFORMATION
  Report Type: Spontaneous
  Country: US (occurrence: None)
  Receive Date: 20160714
  Receipt Date: 20160714
  Transmission Date: 20161109
  Serious: Yes (Other)
  Sender: FDA-Public Use
  Company Number: None

PATIENT
  Age: 77 Year
  Sex: Male
  Weight: 77.3 kg

DRUGS (1)
  1. HUMIRA [Suspect]
     Active Substance: ADALIMUMAB
     Indication: CHRONIC DISEASE
     Dosage: 40MG EVERY OTHER WEEK SUBCUTANEOUSLY
     Route: 058
     Dates: start: 20160326

REACTIONS (3)
  - Infection [None]
  - Back disorder [None]
  - Blood pressure abnormal [None]

NARRATIVE: CASE EVENT DATE: 20160512
